FAERS Safety Report 20373368 (Version 2)
Quarter: 2022Q1

REPORT INFORMATION
  Report Type: Spontaneous
  Country: IE (occurrence: IE)
  Receive Date: 20220125
  Receipt Date: 20220216
  Transmission Date: 20220423
  Serious: No
  Sender: FDA-Public Use
  Company Number: IE-AMGEN-IRLSP2022008142

PATIENT
  Sex: Female

DRUGS (1)
  1. NEULASTA [Suspect]
     Active Substance: PEGFILGRASTIM
     Indication: Breast cancer
     Dosage: 6 MILLIGRAM
     Route: 065
     Dates: start: 20211224

REACTIONS (2)
  - Liquid product physical issue [Unknown]
  - Device issue [Unknown]

NARRATIVE: CASE EVENT DATE: 20220117
